FAERS Safety Report 9707809 (Version 1)
Quarter: 2013Q4

REPORT INFORMATION
  Report Type: Spontaneous
  Country: JP (occurrence: JP)
  Receive Date: 20131125
  Receipt Date: 20131125
  Transmission Date: 20140711
  Serious: Yes (Hospitalization)
  Sender: FDA-Public Use
  Company Number: JP-NOVOPROD-392886

PATIENT
  Age: 32 Year
  Sex: Female

DRUGS (2)
  1. NOVORAPID CHU FLEXPEN [Suspect]
     Indication: TYPE 2 DIABETES MELLITUS
     Dosage: 100 U, QD
     Route: 058
  2. NOVORAPID CHU FLEXPEN [Suspect]
     Dosage: 8 U, QD
     Route: 058

REACTIONS (3)
  - Gestational hypertension [Unknown]
  - Hypoglycaemia [Unknown]
  - Exposure during pregnancy [Unknown]
